FAERS Safety Report 8029599-3 (Version None)
Quarter: 2012Q1

REPORT INFORMATION
  Report Type: 
  Country: None (occurrence: None)
  Receive Date: 20120109
  Receipt Date: 20120103
  Transmission Date: 20120608
  Serious: No
  Sender: FDA-Public Use
  Company Number: US-PFIZER INC-2012002167

PATIENT

DRUGS (1)
  1. DETROL LA [Suspect]
     Indication: MICTURITION URGENCY
     Dosage: 4 MG, EVERY MORNING

REACTIONS (2)
  - MICTURITION URGENCY [None]
  - NOCTURIA [None]
